FAERS Safety Report 10043952 (Version 2)
Quarter: 2014Q1

REPORT INFORMATION
  Report Type: Spontaneous
  Country: US (occurrence: US)
  Receive Date: 20140328
  Receipt Date: 20140328
  Transmission Date: 20141002
  Serious: No
  Sender: FDA-Public Use
  Company Number: US-MYLANLABS-2013S1010541

PATIENT
  Age: 45 Year
  Sex: Male

DRUGS (9)
  1. EMSAM (SELEGILINE TRANSDERMAL SYSTEM) [Suspect]
     Indication: DEPRESSION
     Route: 062
     Dates: start: 200607, end: 200607
  2. ZOLOFT [Suspect]
     Indication: DEPRESSION
  3. EFFEXOR [Suspect]
     Indication: DEPRESSION
  4. PROZAC [Suspect]
     Indication: DEPRESSION
  5. TOFRANIL [Suspect]
     Indication: DEPRESSION
  6. CELEXA [Suspect]
     Indication: DEPRESSION
  7. RABEPRAZOLE SODIUM [Concomitant]
     Indication: GASTROOESOPHAGEAL REFLUX DISEASE
     Route: 048
  8. ROSUVASTATIN [Concomitant]
     Indication: BLOOD CHOLESTEROL INCREASED
     Route: 048
  9. LEVOTHYROXINE [Concomitant]
     Indication: HYPOTHYROIDISM
     Route: 048

REACTIONS (3)
  - Drug ineffective [Recovered/Resolved]
  - Depression [Recovered/Resolved]
  - Anxiety [Recovered/Resolved]
